FAERS Safety Report 9516635 (Version 1)
Quarter: 2013Q1

REPORT INFORMATION
  Report Type: Spontaneous
  Country: US (occurrence: None)
  Receive Date: 20130305
  Receipt Date: 20130305
  Transmission Date: 20140127
  Serious: Yes (Other)
  Sender: FDA-Public Use
  Company Number: 163-21880-12120616

PATIENT
  Age: 76 Year
  Sex: Male

DRUGS (3)
  1. REVLIMID (LENALIDOMIDE) (CAPSULES) [Suspect]
     Indication: MYELODYSPLASTIC SYNDROME
     Route: 048
     Dates: start: 20121109
  2. NEULASTA(PEGFILGRASTIM)(INJECTION) [Concomitant]
  3. ARANESP(DARBEPOETIN ALFA)(INJECTION) [Concomitant]

REACTIONS (1)
  - Nasopharyngitis [None]
